FAERS Safety Report 5804229-7 (Version None)
Quarter: 2008Q3

REPORT INFORMATION
  Report Type: 
  Country: None (occurrence: None)
  Receive Date: 20080707
  Receipt Date: 20080624
  Transmission Date: 20090109
  Serious: Yes (Death, Other)
  Sender: FDA-Public Use
  Company Number: 2008AL007743

PATIENT
  Age: 42 Year
  Sex: Male

DRUGS (9)
  1. DIAZEPAM [Suspect]
     Dosage: QD; PO
     Route: 048
  2. PAREGORIC LIQUID USP (ALPHARMA) (PAREGORIC LIQUID USP (ALPHARMA)) [Suspect]
     Dosage: QD
  3. FEVERALL [Suspect]
     Dosage: PO
     Route: 048
  4. CITALOPRAM HYDROBROMIDE [Suspect]
     Dosage: PO
     Route: 048
  5. BUPROPION HYDROCHLORIDE [Suspect]
     Dosage: PO
     Route: 048
  6. CODEINE SUL TAB [Concomitant]
  7. METHAMPHETAMINE HYDROCHLORIDE [Concomitant]
  8. BROMAZEPAM [Concomitant]
  9. SODIUM SALICYLATE ECT [Concomitant]

REACTIONS (3)
  - DRUG ABUSE [None]
  - DRUG SCREEN POSITIVE [None]
  - DRUG TOXICITY [None]
